FAERS Safety Report 5317874-2 (Version None)
Quarter: 2007Q2

REPORT INFORMATION
  Report Type: 
  Country: None (occurrence: None)
  Receive Date: 20070430
  Receipt Date: 20070423
  Transmission Date: 20071010
  Serious: Yes (Hospitalization)
  Sender: FDA-Public Use
  Company Number: 2007SP005949

PATIENT
  Age: 73 Year
  Sex: Male
  Weight: 55 kg

DRUGS (3)
  1. PEG-INTRON [Suspect]
     Indication: HEPATITIS C
     Dosage: SEE IMAGE
     Route: 058
     Dates: start: 20060727, end: 20060803
  2. PEG-INTRON [Suspect]
     Indication: HEPATITIS C
     Dosage: SEE IMAGE
     Route: 058
     Dates: start: 20060810, end: 20070316
  3. REBETOL [Suspect]
     Indication: HEPATITIS C
     Dosage: 400 MG; QD; PO
     Route: 048
     Dates: start: 20060727, end: 20070316

REACTIONS (2)
  - DIVERTICULUM INTESTINAL HAEMORRHAGIC [None]
  - PLATELET COUNT DECREASED [None]
